FAERS Safety Report 17731547 (Version 1)
Quarter: 2020Q2

REPORT INFORMATION
  Report Type: Report from Study
  Country: None (occurrence: US)
  Receive Date: 20200430
  Receipt Date: 20200430
  Transmission Date: 20200714
  Serious: Yes (Other)
  Sender: FDA-Public Use
  Company Number: US-ABBVIE-20K-163-3291918-00

PATIENT
  Sex: Female

DRUGS (2)
  1. HUMIRA [Suspect]
     Active Substance: ADALIMUMAB
     Indication: RHEUMATOID ARTHRITIS
  2. HUMIRA [Suspect]
     Active Substance: ADALIMUMAB
     Indication: PSORIASIS
     Route: 058
     Dates: start: 201902, end: 20200322

REACTIONS (14)
  - Rhinitis [Unknown]
  - Asthenia [Unknown]
  - Deafness transitory [Recovered/Resolved]
  - Infection [Unknown]
  - Liver function test decreased [Recovered/Resolved]
  - Blood count abnormal [Recovered/Resolved]
  - Headache [Unknown]
  - Breast pain [Not Recovered/Not Resolved]
  - Ageusia [Unknown]
  - General physical health deterioration [Unknown]
  - Adenoidal hypertrophy [Unknown]
  - Musculoskeletal stiffness [Not Recovered/Not Resolved]
  - Breast hyperplasia [Not Recovered/Not Resolved]
  - Anosmia [Unknown]
